FAERS Safety Report 22230901 (Version 1)
Quarter: 2023Q2

REPORT INFORMATION
  Report Type: Spontaneous
  Country: NA (occurrence: NA)
  Receive Date: 20230420
  Receipt Date: 20230420
  Transmission Date: 20230722
  Serious: Yes (Other)
  Sender: FDA-Public Use
  Company Number: NA-MACLEODS PHARMACEUTICALS US LTD-MAC2023040810

PATIENT

DRUGS (4)
  1. LAMIVUDINE [Suspect]
     Active Substance: LAMIVUDINE
     Indication: HIV infection
     Dosage: UNK (STOP DATE: FEB 2020)
     Route: 065
  2. TENOFOVIR [Suspect]
     Active Substance: TENOFOVIR
     Indication: HIV infection
     Dosage: UNK
     Route: 065
  3. EFAVIRENZ [Suspect]
     Active Substance: EFAVIRENZ
     Indication: HIV infection
     Dosage: UNK
     Route: 065
  4. FLUCONAZOLE [Concomitant]
     Active Substance: FLUCONAZOLE
     Indication: Oesophageal candidiasis
     Dosage: UNK
     Route: 065

REACTIONS (5)
  - Renal injury [Recovered/Resolved]
  - Aplasia pure red cell [Recovered/Resolved]
  - Drug resistance mutation [Unknown]
  - Treatment noncompliance [Unknown]
  - Treatment failure [Unknown]
